FAERS Safety Report 23429823 (Version 1)
Quarter: 2024Q1

REPORT INFORMATION
  Report Type: Spontaneous
  Country: CN (occurrence: CN)
  Receive Date: 20240122
  Receipt Date: 20240122
  Transmission Date: 20240410
  Serious: Yes (Other)
  Sender: FDA-Public Use
  Company Number: CN-009507513-2401CHN007283

PATIENT
  Age: 74 Year
  Sex: Male
  Weight: 60 kg

DRUGS (2)
  1. CILASTATIN SODIUM\IMIPENEM [Suspect]
     Active Substance: CILASTATIN SODIUM\IMIPENEM
     Indication: Pneumonia
     Dosage: 1 G, Q12H
     Route: 041
     Dates: start: 20231223, end: 20231225
  2. SODIUM CHLORIDE [Concomitant]
     Active Substance: SODIUM CHLORIDE
     Indication: Pneumonia
     Dosage: 100 ML, Q12H
     Route: 041
     Dates: start: 20231223

REACTIONS (2)
  - Epilepsy [Recovering/Resolving]
  - Incorrect dosage administered [Unknown]

NARRATIVE: CASE EVENT DATE: 20231223
